FAERS Safety Report 6665613-5 (Version None)
Quarter: 2010Q2

REPORT INFORMATION
  Report Type: 
  Country: None (occurrence: None)
  Receive Date: 20100402
  Receipt Date: 20100329
  Transmission Date: 20101027
  Serious: Yes (Death, Hospitalization)
  Sender: FDA-Public Use
  Company Number: NL-SANOFI-AVENTIS-2010SA018247

PATIENT
  Age: 71 Year
  Sex: Male
  Weight: 117 kg

DRUGS (2)
  1. TAXOTERE [Suspect]
     Route: 041
     Dates: start: 20091016, end: 20091016
  2. PREDNISONE TAB [Concomitant]
     Indication: PROSTATE CANCER
     Route: 048
     Dates: start: 20091016, end: 20091022

REACTIONS (4)
  - DEATH [None]
  - FEBRILE NEUTROPENIA [None]
  - OEDEMA [None]
  - PROSTATIC SPECIFIC ANTIGEN INCREASED [None]
